APPROVED DRUG PRODUCT: METHOTREXATE SODIUM PRESERVATIVE FREE
Active Ingredient: METHOTREXATE SODIUM
Strength: EQ 50MG BASE/2ML (EQ 25MG BASE/ML)
Dosage Form/Route: INJECTABLE;INJECTION
Application: A201529 | Product #001
Applicant: EUGIA PHARMA SPECIALITIES LTD
Approved: Mar 29, 2012 | RLD: No | RS: No | Type: DISCN